FAERS Safety Report 24407810 (Version 1)
Quarter: 2024Q4

REPORT INFORMATION
  Report Type: Spontaneous
  Country: US (occurrence: US)
  Receive Date: 20241007
  Receipt Date: 20241007
  Transmission Date: 20250114
  Serious: No
  Sender: SANOFI AVENTIS
  Company Number: US-SA-2024SA288312

PATIENT
  Age: 14 Year

DRUGS (1)
  1. DUPIXENT [Suspect]
     Active Substance: DUPILUMAB
     Dosage: UNK, PRN
     Route: 058

REACTIONS (4)
  - Paraesthesia [Unknown]
  - Rash erythematous [Unknown]
  - Pruritus [Unknown]
  - Inappropriate schedule of product administration [Unknown]
